FAERS Safety Report 6219844-9 (Version None)
Quarter: 2009Q2

REPORT INFORMATION
  Report Type: 
  Country: None (occurrence: None)
  Receive Date: 20090609
  Receipt Date: 20090601
  Transmission Date: 20091009
  Serious: Yes (Hospitalization, Other)
  Sender: FDA-Public Use
  Company Number: US-NOVOPROD-283296

PATIENT
  Age: 16 Year
  Sex: Male
  Weight: 56.4 kg

DRUGS (1)
  1. NORDITROPIN NORDIFLEX [Suspect]
     Indication: GROWTH HORMONE DEFICIENCY
     Dosage: UNKNOWN
     Route: 058
     Dates: start: 20060201, end: 20080701

REACTIONS (1)
  - THYROID CANCER [None]
